FAERS Safety Report 6504662-4 (Version None)
Quarter: 2009Q4

REPORT INFORMATION
  Report Type: 
  Country: None (occurrence: None)
  Receive Date: 20091215
  Receipt Date: 20091130
  Transmission Date: 20100525
  Serious: Yes (Other)
  Sender: FDA-Public Use
  Company Number: 2009-4964

PATIENT
  Age: 40 Year
  Sex: Female

DRUGS (5)
  1. APO-GO AMPOULES (APO-GO) (APOMORPHINE HYDROCHLORIDE) (APOMORPHINE HYDR [Suspect]
     Indication: PARKINSON'S DISEASE
     Dosage: NOT REPORTED (3 MG, AS REQUIRED), SUBCUTANOUS
     Route: 058
     Dates: start: 20050101
  2. PRAMIPEXOLE (APO-GO) (PRAMIPEXOLE) (APOMORPHINE HYDROCHLORIDE) [Suspect]
     Indication: PARKINSON'S DISEASE
     Dosage: NOT REPORTED (4.5 MG, AS REQUIRED), ORAL
     Route: 048
     Dates: start: 20050101, end: 20060101
  3. ENTACAPONE (ENTACAPONE) [Concomitant]
  4. MADOPAR (MADOPAR) [Concomitant]
  5. STALEVO (STALEVO) [Concomitant]

REACTIONS (3)
  - AFFECTIVE DISORDER [None]
  - ANXIETY [None]
  - PATHOLOGICAL GAMBLING [None]
